FAERS Safety Report 13286870 (Version 1)
Quarter: 2017Q1

REPORT INFORMATION
  Report Type: Spontaneous
  Country: US (occurrence: US)
  Receive Date: 20170302
  Receipt Date: 20170302
  Transmission Date: 20170428
  Serious: No
  Sender: FDA-Public Use
  Company Number: US-PERRIGO-16US021536

PATIENT
  Age: 62 Year
  Sex: Female
  Weight: 45.35 kg

DRUGS (1)
  1. SELENIUM SULFIDE. [Suspect]
     Active Substance: SELENIUM SULFIDE
     Indication: RASH
     Dosage: SMALL AMOUNT, SINGLE
     Route: 061
     Dates: start: 20161030, end: 20161030

REACTIONS (3)
  - Sneezing [Recovered/Resolved]
  - Hypersensitivity [Recovered/Resolved]
  - Lacrimation increased [Recovered/Resolved]

NARRATIVE: CASE EVENT DATE: 20161030
